FAERS Safety Report 24800226 (Version 1)
Quarter: 2025Q1

REPORT INFORMATION
  Report Type: Spontaneous
  Country: FR (occurrence: FR)
  Receive Date: 20250102
  Receipt Date: 20250102
  Transmission Date: 20250408
  Serious: No
  Sender: BLUEPRINT MEDICINES
  Company Number: FR-Blueprint Medicines Corporation-2024-AER-00059

PATIENT
  Age: 22 Year
  Sex: Female

DRUGS (1)
  1. AVAPRITINIB [Suspect]
     Active Substance: AVAPRITINIB
     Indication: Brain stem glioma
     Route: 065

REACTIONS (1)
  - Off label use [Unknown]
